FAERS Safety Report 6409570-5 (Version None)
Quarter: 2009Q4

REPORT INFORMATION
  Report Type: 
  Country: None (occurrence: None)
  Receive Date: 20091020
  Receipt Date: 20091020
  Transmission Date: 20100525
  Serious: Yes (Hospitalization)
  Sender: FDA-Public Use
  Company Number: None

PATIENT
  Sex: Male
  Weight: 70.3075 kg

DRUGS (12)
  1. AZATHIOPRINE [Suspect]
     Indication: MESENTERITIS
     Dosage: 50MG QD FF  A FEW MONTHS
  2. AZATHIOPRINE [Suspect]
     Indication: RETROPERITONEAL FIBROSIS
     Dosage: 50MG QD FF  A FEW MONTHS
  3. TAMOXIFEN CITRATE [Concomitant]
  4. COLCHICINE [Concomitant]
  5. PREDNISONE [Concomitant]
  6. ALENDRONATE SODIUM [Concomitant]
  7. OMEPRAZOLE [Concomitant]
  8. DULOXETINE [Concomitant]
  9. METHADONE HYDROCHLORIDE [Concomitant]
  10. FENTANYL TTS [Concomitant]
  11. FERROUS SULFATE TAB [Concomitant]
  12. AZITHROMYCIN [Concomitant]

REACTIONS (10)
  - CHROMATURIA [None]
  - DECREASED APPETITE [None]
  - FATIGUE [None]
  - JAUNDICE [None]
  - NAUSEA [None]
  - OCULAR ICTERUS [None]
  - POLYDIPSIA [None]
  - POLYURIA [None]
  - VOMITING [None]
  - WEIGHT DECREASED [None]
